FAERS Safety Report 25089780 (Version 5)
Quarter: 2025Q4

REPORT INFORMATION
  Report Type: Spontaneous
  Country: US (occurrence: US)
  Receive Date: 20250318
  Receipt Date: 20251107
  Transmission Date: 20260117
  Serious: Yes (Other)
  Sender: ROCHE
  Company Number: US-ROCHE-10000226751

PATIENT
  Age: 39 Year
  Sex: Female
  Weight: 61.23 kg

DRUGS (4)
  1. OCREVUS [Suspect]
     Active Substance: OCRELIZUMAB
     Indication: Relapsing multiple sclerosis
     Route: 065
     Dates: start: 201808, end: 20240802
  2. VITAMINS [Concomitant]
     Active Substance: VITAMINS
     Dosage: ONE PILL ONCE A DAY
  3. ASPIRIN [Concomitant]
     Active Substance: ASPIRIN
     Route: 048
  4. SERTRALINE HYDROCHLORIDE [Concomitant]
     Active Substance: SERTRALINE HYDROCHLORIDE
     Route: 048

REACTIONS (9)
  - Maternal exposure before pregnancy [Unknown]
  - Amylase increased [Unknown]
  - Lipase increased [Unknown]
  - Blood glucose increased [Unknown]
  - Blood urea decreased [Unknown]
  - Alanine aminotransferase decreased [Unknown]
  - Hypothyroidism [Not Recovered/Not Resolved]
  - Hypertension [Unknown]
  - Diabetes mellitus [Unknown]

NARRATIVE: CASE EVENT DATE: 20250307
